FAERS Safety Report 9483920 (Version 1)
Quarter: 2013Q3

REPORT INFORMATION
  Report Type: Spontaneous
  Country: US (occurrence: US)
  Receive Date: 20130828
  Receipt Date: 20130828
  Transmission Date: 20140515
  Serious: Yes (Death)
  Sender: FDA-Public Use
  Company Number: PHHY2013US092875

PATIENT
  Age: 67 Year
  Sex: Male

DRUGS (3)
  1. METHYLPHENIDATE [Suspect]
  2. AMANTADINE [Suspect]
  3. LEVODOPA+CARBIDOPA [Suspect]

REACTIONS (2)
  - Progressive supranuclear palsy [Fatal]
  - Drug ineffective [Unknown]
